FAERS Safety Report 7927181-7 (Version None)
Quarter: 2011Q4

REPORT INFORMATION
  Report Type: 
  Country: None (occurrence: None)
  Receive Date: 20111116
  Receipt Date: 20111101
  Transmission Date: 20120403
  Serious: Yes (Hospitalization)
  Sender: FDA-Public Use
  Company Number: FK201102614

PATIENT
  Age: 42 Year
  Sex: Male

DRUGS (4)
  1. GEMCITABINE [Suspect]
     Indication: FIBROSARCOMA
     Dates: start: 20040501
  2. GEMCITABINE [Suspect]
     Indication: FIBROSARCOMA
     Dates: start: 20080801
  3. DOCETAXEL (DOCETAXEL) (DOCETAXEL) [Concomitant]
  4. BEVACIZUMAB (BEVACIZUMAB) (BEVACIZUMAB) [Suspect]
     Indication: FIBROSARCOMA
     Dates: start: 20080801

REACTIONS (2)
  - GLOMERULONEPHRITIS MEMBRANOPROLIFERATIVE [None]
  - NORMOCHROMIC NORMOCYTIC ANAEMIA [None]
